FAERS Safety Report 8702664 (Version 2)
Quarter: 2012Q4

REPORT INFORMATION
  Report Type: 
  Country: LT (occurrence: LT)
  Receive Date: 20120803
  Receipt Date: 20120927
  Transmission Date: 20130627
  Serious: Yes (Death)
  Sender: FDA-Public Use
  Company Number: LT-ALEXION PHARMACEUTICALS INC.-A201201413

PATIENT
  Age: 6 None
  Sex: Male

DRUGS (17)
  1. SOLIRIS 300MG [Suspect]
     Indication: HAEMOLYTIC URAEMIC SYNDROME
     Dosage: 600 mg, 2 days
     Route: 042
     Dates: start: 20120715, end: 20120716
  2. ASPIRIN [Concomitant]
  3. ALPHACALCIDOL [Concomitant]
  4. HUMAN GROWTH HORMONE, RECOMBINANT [Concomitant]
     Indication: GROWTH HORMONE DEFICIENCY
  5. ERYTHROPOETIN [Concomitant]
     Indication: ANAEMIA
  6. ACFI [Concomitant]
     Indication: HYPERTENSION
  7. BETA BLOCKERS [Concomitant]
     Indication: HYPERTENSION
  8. IMIDASOLINE RECEPTOR AGONISTS [Concomitant]
     Indication: HYPERTENSION
  9. CYCLOSPORIN A [Concomitant]
     Dosage: UNK
  10. ELECTROLYTES [Concomitant]
     Dosage: UNK
  11. AMPICILLIN [Concomitant]
     Dosage: UNK
  12. ENALAPRIL [Concomitant]
     Indication: HYPERTENSION
     Dosage: UNK
  13. METOPROLOL [Concomitant]
     Indication: HYPERTENSION
  14. LOSARTAN [Concomitant]
     Indication: HYPERTENSION
     Dosage: UNK
  15. DOXAZOSIN [Concomitant]
     Indication: HYPERTENSION
     Dosage: UNK
  16. DILTIAZEM [Concomitant]
     Indication: HYPERTENSION
     Dosage: UNK
  17. FUROSEMIDE [Concomitant]
     Indication: HYPERTENSION
     Dosage: UNK

REACTIONS (1)
  - Cerebrovascular accident [Fatal]
